FAERS Safety Report 6786496-9 (Version None)
Quarter: 2010Q2

REPORT INFORMATION
  Report Type: 
  Country: None (occurrence: None)
  Receive Date: 20100623
  Receipt Date: 20100615
  Transmission Date: 20101027
  Serious: Yes (Life-Threatening, Other)
  Sender: FDA-Public Use
  Company Number: B0660648A

PATIENT
  Age: 4 Year
  Sex: Male

DRUGS (7)
  1. MELPHALAN HYDROCHLORIDE [Suspect]
     Dates: start: 20090701
  2. FLUDARABINE [Suspect]
     Dates: start: 20090701
  3. CAMPATH [Suspect]
     Dates: start: 20090701
  4. DEXAMETHASONE ACETATE [Concomitant]
     Indication: CONGENITAL WHITE BLOOD CELL DISORDER
     Route: 065
  5. ETOPOSIDE [Concomitant]
     Indication: CONGENITAL WHITE BLOOD CELL DISORDER
     Route: 065
  6. CYCLOSPORINE [Concomitant]
     Indication: CONGENITAL WHITE BLOOD CELL DISORDER
     Route: 065
  7. STEM CELL TRANSPLANT [Concomitant]

REACTIONS (7)
  - BALANCE DISORDER [None]
  - CENTRAL NERVOUS SYSTEM LYMPHOMA [None]
  - EPSTEIN-BARR VIRUS ASSOCIATED LYMPHOPROLIFERATIVE DISORDER [None]
  - HYDROCEPHALUS [None]
  - SKIN LESION [None]
  - SOMNOLENCE [None]
  - VOMITING [None]
